FAERS Safety Report 24968069 (Version 1)
Quarter: 2025Q1

REPORT INFORMATION
  Report Type: Spontaneous
  Country: US (occurrence: US)
  Receive Date: 20250214
  Receipt Date: 20250214
  Transmission Date: 20250409
  Serious: No
  Sender: AVEO PHARMACEUTICALS
  Company Number: US-AVEO PHARMACEUTICALS, INC.-2024-AVEO-US000474

PATIENT

DRUGS (9)
  1. FOTIVDA [Suspect]
     Active Substance: TIVOZANIB HYDROCHLORIDE
     Indication: Renal cell carcinoma
     Dosage: 1.34 MG, DAILY FOR 21 DAYS WITH 7 DAYS OFF (28-DAY CYCLE)
     Route: 048
  2. ESCITALOPRAM [Concomitant]
     Active Substance: ESCITALOPRAM OXALATE
  3. GABAPENTIN [Concomitant]
     Active Substance: GABAPENTIN
  4. LEVOTHYROXINE SODIUM [Concomitant]
     Active Substance: LEVOTHYROXINE SODIUM
  5. OLANZAPINE [Concomitant]
     Active Substance: OLANZAPINE
  6. LOSARTAN [Concomitant]
     Active Substance: LOSARTAN
  7. ALEVE [Concomitant]
     Active Substance: NAPROXEN SODIUM
  8. ENTERADE [Concomitant]
  9. SILVER PROTEIN MILD [Concomitant]

REACTIONS (8)
  - Nausea [Unknown]
  - Fatigue [Unknown]
  - Diarrhoea [Unknown]
  - Decreased appetite [Unknown]
  - Dry mouth [Not Recovered/Not Resolved]
  - Oral discomfort [Not Recovered/Not Resolved]
  - Taste disorder [Not Recovered/Not Resolved]
  - Disease progression [Unknown]

NARRATIVE: CASE EVENT DATE: 20240101
